FAERS Safety Report 23381920 (Version 2)
Quarter: 2025Q2

REPORT INFORMATION
  Report Type: Spontaneous
  Country: US (occurrence: US)
  Receive Date: 20240109
  Receipt Date: 20250514
  Transmission Date: 20250716
  Serious: Yes (Death)
  Sender: TEVA
  Company Number: US-TEVA-VS-3142417

PATIENT
  Age: 58 Year
  Sex: Female

DRUGS (1)
  1. AUSTEDO [Suspect]
     Active Substance: DEUTETRABENAZINE
     Indication: Product used for unknown indication
     Route: 065

REACTIONS (1)
  - Death [Fatal]
